FAERS Safety Report 4674844-5 (Version None)
Quarter: 2005Q2

REPORT INFORMATION
  Report Type: 
  Country: None (occurrence: None)
  Receive Date: 20050519
  Receipt Date: 20050505
  Transmission Date: 20051028
  Serious: Yes (Other)
  Sender: FDA-Public Use
  Company Number: THYM-10524

PATIENT
  Age: 75 Year
  Sex: Male

DRUGS (9)
  1. THYMOGLOBULIN [Suspect]
     Indication: APLASTIC ANAEMIA
     Dosage: 2.5 MG ONCE IV
     Route: 042
  2. THYMOGLOBULIN [Suspect]
     Indication: APLASTIC ANAEMIA
     Dosage: 3.75 MG/KG QD IV
     Route: 042
  3. LYMPHOGLOBULINE [Suspect]
     Indication: APLASTIC ANAEMIA
     Dosage: 10 MG ONCE IV
     Route: 042
  4. LYMPHOGLOBULINE [Suspect]
     Indication: APLASTIC ANAEMIA
     Dosage: 15 MG/KG QD IV
     Route: 042
  5. OXYMETHOLONE [Suspect]
  6. CYCLOSPORINE [Suspect]
  7. HYDROCORTISONE [Concomitant]
  8. PIRITON [Concomitant]
  9. PREDNISOLONE [Concomitant]

REACTIONS (2)
  - NO THERAPEUTIC RESPONSE [None]
  - RENAL IMPAIRMENT [None]
